FAERS Safety Report 9621615 (Version 1)
Quarter: 2013Q4

REPORT INFORMATION
  Report Type: Spontaneous
  Country: US (occurrence: US)
  Receive Date: 20131015
  Receipt Date: 20131015
  Transmission Date: 20140711
  Serious: No
  Sender: FDA-Public Use
  Company Number: US-009507513-1309USA007948

PATIENT
  Age: 61 Year
  Sex: Female

DRUGS (3)
  1. ASMANEX TWISTHALER [Suspect]
     Dosage: 1 PUFF, IN THE EVENING
     Route: 055
     Dates: start: 201210, end: 201307
  2. ARMOUR THYROID TABLETS [Concomitant]
  3. ALLEGRA [Concomitant]

REACTIONS (2)
  - Myalgia [Unknown]
  - Back pain [Unknown]
